FAERS Safety Report 18577045 (Version 2)
Quarter: 2021Q1

REPORT INFORMATION
  Report Type: Spontaneous
  Country: JP (occurrence: JP)
  Receive Date: 20201203
  Receipt Date: 20210209
  Transmission Date: 20210419
  Serious: Yes (Death, Life-Threatening, Hospitalization, Other)
  Sender: FDA-Public Use
  Company Number: JP-009507513-2002JPN002994J

PATIENT
  Age: 65 Year
  Sex: Male
  Weight: 67 kg

DRUGS (11)
  1. DECADRON [Concomitant]
     Active Substance: DEXAMETHASONE
     Indication: TUMOUR ASSOCIATED FEVER
     Dosage: 0.5 MILLIGRAM, QD
     Route: 048
     Dates: start: 20191129, end: 20200226
  2. TARLIGE [Concomitant]
     Active Substance: MIROGABALIN BESYLATE
     Indication: CANCER PAIN
     Dosage: 5 MILLIGRAM, BID
     Route: 048
     Dates: start: 20191127, end: 20200225
  3. LOXOPROFEN [Concomitant]
     Active Substance: LOXOPROFEN
     Indication: CANCER PAIN
     Dosage: 60 MILLIGRAM, TID
     Route: 048
     Dates: start: 20190218, end: 20200225
  4. KEYTRUDA [Suspect]
     Active Substance: PEMBROLIZUMAB
     Indication: NON-SMALL CELL LUNG CANCER STAGE III
     Dosage: 200 MILLIGRAM, Q3W
     Route: 041
     Dates: start: 20200114, end: 20200114
  5. ADONA [Concomitant]
     Indication: HAEMOPTYSIS
     Dosage: 30 MILLIGRAM, TID
     Route: 048
     Dates: start: 20191023, end: 20200225
  6. SYMPROIC [Concomitant]
     Active Substance: NALDEMEDINE
     Indication: CONSTIPATION PROPHYLAXIS
     Dosage: 0.2 MILLIGRAM, QD
     Route: 048
     Dates: start: 20191120, end: 20200225
  7. NEXIUM [Concomitant]
     Active Substance: ESOMEPRAZOLE MAGNESIUM
     Indication: GASTRITIS PROPHYLAXIS
     Dosage: 10 MILLIGRAM, QD
     Route: 048
     Dates: start: 20190223, end: 20200226
  8. AVOLVE [Concomitant]
     Active Substance: DUTASTERIDE
     Indication: BENIGN PROSTATIC HYPERPLASIA
     Dosage: 0.5 MILLIGRAM, QD
     Route: 048
     Dates: start: 20191129, end: 20200226
  9. MS TWICELON [Concomitant]
     Indication: CANCER PAIN
     Dosage: 30 MILLIGRAM, BID
     Route: 048
     Dates: start: 20191120, end: 20200224
  10. OPSO [Concomitant]
     Active Substance: MORPHINE HYDROCHLORIDE
     Indication: CANCER PAIN
     Dosage: 5 MILLILITER/ ADJUSTED AMOUNT
     Route: 048
     Dates: start: 20191120, end: 20200118
  11. TAMSULOSIN HYDROCHLORIDE. [Concomitant]
     Active Substance: TAMSULOSIN HYDROCHLORIDE
     Indication: DYSURIA
     Dosage: 0.2 GRAM, QD
     Route: 048
     Dates: start: 20200118, end: 20200226

REACTIONS (1)
  - Interstitial lung disease [Fatal]

NARRATIVE: CASE EVENT DATE: 20200123
